FAERS Safety Report 9921975 (Version 1)
Quarter: 2014Q1

REPORT INFORMATION
  Report Type: Spontaneous
  Country: GB (occurrence: GB)
  Receive Date: 20140225
  Receipt Date: 20140225
  Transmission Date: 20141002
  Serious: Yes (Other)
  Sender: FDA-Public Use
  Company Number: GB-TEVA-463481ISR

PATIENT
  Age: 33 Year
  Sex: Female

DRUGS (2)
  1. AMITRIPTYLINE [Suspect]
     Indication: CYSTITIS INTERSTITIAL
     Dosage: INCREASED TO 100ML
     Dates: start: 2013
  2. AMITRIPTYLINE [Suspect]
     Indication: CYSTITIS INTERSTITIAL

REACTIONS (3)
  - Agitation [Unknown]
  - Aggression [Unknown]
  - Condition aggravated [Unknown]
